FAERS Safety Report 21969811 (Version 1)
Quarter: 2023Q1

REPORT INFORMATION
  Report Type: Spontaneous
  Country: US (occurrence: US)
  Receive Date: 20230208
  Receipt Date: 20230208
  Transmission Date: 20230418
  Serious: No
  Sender: FDA-Public Use
  Company Number: US-BEH-2023154912

PATIENT
  Sex: Male

DRUGS (2)
  1. HIZENTRA [Suspect]
     Active Substance: HUMAN IMMUNOGLOBULIN G
     Dosage: 24 GRAM, QW
     Route: 065
     Dates: start: 2019
  2. COVID-19 VACCINE [Concomitant]

REACTIONS (3)
  - COVID-19 [Unknown]
  - No adverse event [Unknown]
  - Inappropriate schedule of product administration [Unknown]
